FAERS Safety Report 19398759 (Version 1)
Quarter: 2021Q2

REPORT INFORMATION
  Report Type: Spontaneous
  Country: US (occurrence: US)
  Receive Date: 20210609
  Receipt Date: 20210609
  Transmission Date: 20210717
  Serious: No
  Sender: FDA-Public Use
  Company Number: None

PATIENT
  Age: 71 Year
  Sex: Male
  Weight: 97.07 kg

DRUGS (1)
  1. COLCRYS [Suspect]
     Active Substance: COLCHICINE

REACTIONS (1)
  - Economic problem [None]
